FAERS Safety Report 19025076 (Version 1)
Quarter: 2021Q1

REPORT INFORMATION
  Report Type: Spontaneous
  Country: IT (occurrence: IT)
  Receive Date: 20210318
  Receipt Date: 20210318
  Transmission Date: 20210420
  Serious: Yes (Death)
  Sender: FDA-Public Use
  Company Number: IT-PFIZER INC-2021285217

PATIENT
  Age: 60 Year
  Sex: Male

DRUGS (22)
  1. DEXAMETHASONE SODIUM PHOSPHATE. [Suspect]
     Active Substance: DEXAMETHASONE SODIUM PHOSPHATE
     Indication: COVID-19
     Dosage: 12 MG
     Route: 042
     Dates: start: 202003
  2. N?ACETYLCYSTEINE [Suspect]
     Active Substance: ACETYLCYSTEINE
     Indication: COVID-19
     Dosage: 600 MG, 2X/DAY
     Dates: start: 202003
  3. TICAGRELOR. [Suspect]
     Active Substance: TICAGRELOR
     Indication: COVID-19
  4. SODIUM NITROPRUSSIDE. [Suspect]
     Active Substance: SODIUM NITROPRUSSIDE
     Indication: COVID-19
  5. FUROSEMIDE. [Suspect]
     Active Substance: FUROSEMIDE
     Indication: COVID-19
     Dosage: 20 MG, 2X/DAY
     Route: 042
     Dates: start: 202003
  6. PARACETAMOL [Suspect]
     Active Substance: ACETAMINOPHEN
     Indication: COVID-19
     Dosage: UNK
     Dates: start: 202003
  7. EPTIFIBATIDE. [Suspect]
     Active Substance: EPTIFIBATIDE
     Dosage: 180 UG/KG
     Route: 022
  8. HEPARIN SODIUM. [Suspect]
     Active Substance: HEPARIN SODIUM
     Indication: COVID-19
  9. CEFTRIAXONE. [Suspect]
     Active Substance: CEFTRIAXONE
     Indication: COVID-19
     Dosage: 2 G
     Route: 042
     Dates: start: 202003
  10. LOPINAVIR/RITONAVIR [Suspect]
     Active Substance: LOPINAVIR\RITONAVIR
     Indication: ANTIVIRAL TREATMENT
  11. EPTIFIBATIDE. [Suspect]
     Active Substance: EPTIFIBATIDE
     Indication: CORONARY ARTERY THROMBOSIS
     Dosage: 180 UG/KG
     Route: 040
     Dates: start: 202003
  12. EPTIFIBATIDE. [Suspect]
     Active Substance: EPTIFIBATIDE
     Indication: COVID-19
     Dosage: 2 UG/KG
  13. ENOXAPARIN [Suspect]
     Active Substance: ENOXAPARIN
     Indication: EMBOLISM VENOUS
     Dosage: 4000 IU
     Route: 058
     Dates: start: 202003
  14. CEFTRIAXONE. [Suspect]
     Active Substance: CEFTRIAXONE
     Indication: ANTIBIOTIC THERAPY
  15. ENOXAPARIN [Suspect]
     Active Substance: ENOXAPARIN
     Indication: COVID-19
  16. ACETYLSALICYLIC ACID [Suspect]
     Active Substance: ASPIRIN
     Indication: COVID-19
     Dosage: 150 MG
     Dates: start: 202003
  17. HYDROXYCHLOROQUINE [Suspect]
     Active Substance: HYDROXYCHLOROQUINE
     Indication: COVID-19
     Dosage: 200 MG, 2X/DAY
     Dates: start: 202003
  18. ADENOSINE. [Suspect]
     Active Substance: ADENOSINE
     Indication: CORONARY ARTERY THROMBOSIS
     Dosage: UNK
     Route: 022
     Dates: start: 202003
  19. LOPINAVIR/RITONAVIR [Suspect]
     Active Substance: LOPINAVIR\RITONAVIR
     Indication: COVID-19
     Dosage: UNK
     Dates: start: 202003
  20. HEPARIN SODIUM. [Suspect]
     Active Substance: HEPARIN SODIUM
     Indication: EMBOLISM VENOUS
     Dosage: 4000 IU
     Dates: start: 202003
  21. SODIUM NITROPRUSSIDE. [Suspect]
     Active Substance: SODIUM NITROPRUSSIDE
     Indication: CORONARY ARTERY THROMBOSIS
     Dosage: UNK
     Route: 022
     Dates: start: 202003
  22. TICAGRELOR. [Suspect]
     Active Substance: TICAGRELOR
     Indication: CORONARY ARTERY THROMBOSIS
     Dosage: 180 MG
     Route: 048
     Dates: start: 202003

REACTIONS (1)
  - Drug ineffective for unapproved indication [Fatal]
